FAERS Safety Report 6087153-7 (Version None)
Quarter: 2009Q1

REPORT INFORMATION
  Report Type: 
  Country: None (occurrence: None)
  Receive Date: 20090223
  Receipt Date: 20090213
  Transmission Date: 20090719
  Serious: Yes (Death)
  Sender: FDA-Public Use
  Company Number: JP-ABBOTT-09P-087-0501276-00

PATIENT
  Age: 39 Year
  Sex: Female

DRUGS (2)
  1. LEUPROLIDE ACETATE [Suspect]
     Indication: UTERINE LEIOMYOMA
     Route: 058
  2. LEUPROLIDE ACETATE [Suspect]
     Indication: ENDOMETRIOSIS

REACTIONS (2)
  - DIABETES MELLITUS [None]
  - KETOACIDOSIS [None]
